FAERS Safety Report 11210842 (Version 2)
Quarter: 2015Q2

REPORT INFORMATION
  Report Type: Report from Study
  Country: US (occurrence: US)
  Receive Date: 20150622
  Receipt Date: 20150625
  Transmission Date: 20150821
  Serious: No
  Sender: FDA-Public Use
  Company Number: US-ASTRAZENECA-2015SE36302

PATIENT
  Sex: Female

DRUGS (2)
  1. LYNPARZA [Suspect]
     Active Substance: OLAPARIB
     Indication: OVARIAN CANCER
     Route: 048
     Dates: start: 20150126
  2. LYNPARZA [Suspect]
     Active Substance: OLAPARIB
     Indication: OVARIAN CANCER
     Route: 048

REACTIONS (14)
  - Myalgia [Unknown]
  - Arthralgia [Unknown]
  - Oncologic complication [Unknown]
  - Rash [Unknown]
  - Constipation [Unknown]
  - Diarrhoea [Unknown]
  - Neuropathy peripheral [Unknown]
  - Oedema [Unknown]
  - Abdominal pain [Unknown]
  - Cellulitis [Unknown]
  - Fatigue [Unknown]
  - Pain in extremity [Unknown]
  - Peripheral swelling [Unknown]
  - Sciatica [Unknown]
